FAERS Safety Report 5160997-1 (Version None)
Quarter: 2006Q4

REPORT INFORMATION
  Report Type: 
  Country: None (occurrence: None)
  Receive Date: 20061130
  Receipt Date: 20061116
  Transmission Date: 20070319
  Serious: Yes (Other)
  Sender: FDA-Public Use
  Company Number: GRWYE565417NOV06

PATIENT
  Age: 60 Year
  Sex: Male

DRUGS (3)
  1. ENBREL [Suspect]
     Indication: PSORIATIC ARTHROPATHY
     Route: 058
  2. ISONIAZID [Suspect]
     Dosage: 300MG DAILY
     Route: 048
     Dates: end: 20061001
  3. METHOTREXATE [Suspect]
     Dosage: 7.5 MG WEEKLY
     Route: 048
     Dates: end: 20061001

REACTIONS (2)
  - ALANINE AMINOTRANSFERASE INCREASED [None]
  - ASPARTATE AMINOTRANSFERASE INCREASED [None]
